FAERS Safety Report 24020726 (Version 1)
Quarter: 2024Q2

REPORT INFORMATION
  Report Type: Spontaneous
  Country: US (occurrence: US)
  Receive Date: 20240627
  Receipt Date: 20240627
  Transmission Date: 20240716
  Serious: No
  Sender: FDA-Public Use
  Company Number: US-PFIZER INC-202400200182

PATIENT
  Age: 84 Year
  Sex: Male

DRUGS (3)
  1. NIFEDIPINE [Suspect]
     Active Substance: NIFEDIPINE
     Indication: Hypertension
     Dosage: UNK
  2. MEGESTROL ACETATE [Concomitant]
     Active Substance: MEGESTROL ACETATE
     Indication: Decreased appetite
     Dosage: UNK
  3. VYNDAMAX [Concomitant]
     Active Substance: TAFAMIDIS
     Dosage: 61 MG, 1X/DAY

REACTIONS (1)
  - Hypertension [Unknown]
